FAERS Safety Report 16282502 (Version 3)
Quarter: 2023Q1

REPORT INFORMATION
  Report Type: Spontaneous
  Country: US (occurrence: None)
  Receive Date: 20190507
  Receipt Date: 20230106
  Transmission Date: 20230417
  Serious: Yes (Death, Hospitalization, Other)
  Sender: FDA-Public Use
  Company Number: 2019SE61466

PATIENT
  Age: 16530 Day
  Sex: Male
  Weight: 122.5 kg

DRUGS (31)
  1. PRILOSEC [Suspect]
     Active Substance: OMEPRAZOLE MAGNESIUM
     Indication: Gastrooesophageal reflux disease
     Route: 048
     Dates: start: 200001, end: 201607
  2. PRILOSEC [Suspect]
     Active Substance: OMEPRAZOLE MAGNESIUM
     Indication: Gastrooesophageal reflux disease
     Route: 048
     Dates: start: 2000, end: 2015
  3. PRILOSEC [Suspect]
     Active Substance: OMEPRAZOLE MAGNESIUM
     Indication: Gastrooesophageal reflux disease
     Route: 048
     Dates: start: 20000625, end: 20160827
  4. PRILOSEC OTC [Suspect]
     Active Substance: OMEPRAZOLE MAGNESIUM
     Indication: Gastrooesophageal reflux disease
     Route: 048
     Dates: start: 200001, end: 201607
  5. PRILOSEC OTC [Suspect]
     Active Substance: OMEPRAZOLE MAGNESIUM
     Indication: Gastrooesophageal reflux disease
     Route: 048
     Dates: start: 2003, end: 2014
  6. PRILOSEC OTC [Suspect]
     Active Substance: OMEPRAZOLE MAGNESIUM
     Indication: Gastrooesophageal reflux disease
     Route: 048
     Dates: start: 20030601, end: 20160827
  7. LOSARTAN [Concomitant]
     Active Substance: LOSARTAN
     Indication: Renal impairment
     Route: 065
     Dates: start: 20160822
  8. LOSARTAN [Concomitant]
     Active Substance: LOSARTAN
     Indication: Hypertension
     Route: 065
     Dates: start: 20160822
  9. LOSARTAN [Concomitant]
     Active Substance: LOSARTAN
     Indication: Renal impairment
     Route: 065
     Dates: start: 20161003
  10. LOSARTAN [Concomitant]
     Active Substance: LOSARTAN
     Indication: Hypertension
     Route: 065
     Dates: start: 20161003
  11. LOSARTAN [Concomitant]
     Active Substance: LOSARTAN
     Indication: Renal impairment
     Route: 065
     Dates: start: 2015, end: 2017
  12. LOSARTAN [Concomitant]
     Active Substance: LOSARTAN
     Indication: Hypertension
     Route: 065
     Dates: start: 2015, end: 2017
  13. LASIX [Concomitant]
     Active Substance: FUROSEMIDE
     Indication: Renal impairment
     Route: 065
     Dates: start: 20160822
  14. LASIX [Concomitant]
     Active Substance: FUROSEMIDE
     Indication: Hypertension
     Route: 065
     Dates: start: 20160822
  15. LASIX [Concomitant]
     Active Substance: FUROSEMIDE
     Indication: Renal impairment
     Route: 065
     Dates: start: 2015, end: 2018
  16. LASIX [Concomitant]
     Active Substance: FUROSEMIDE
     Indication: Hypertension
     Route: 065
     Dates: start: 2015, end: 2018
  17. LEVOTHYROXINE [Concomitant]
     Active Substance: LEVOTHYROXINE
     Indication: Thyroid disorder
     Route: 065
     Dates: start: 20160822
  18. TOUJEO [Concomitant]
     Active Substance: INSULIN GLARGINE
     Indication: Renal impairment
     Route: 065
     Dates: start: 20160822
  19. VITAMIN C [Concomitant]
     Active Substance: ASCORBIC ACID
     Indication: Vitamin C deficiency
     Route: 065
     Dates: start: 20160822
  20. CRANBERRY [Concomitant]
     Active Substance: CRANBERRY
     Indication: Renal impairment
     Route: 065
     Dates: start: 20150119
  21. ZANTAC [Concomitant]
     Active Substance: RANITIDINE HYDROCHLORIDE
     Route: 065
     Dates: start: 2018, end: 2019
  22. ROLAIDS [Concomitant]
     Active Substance: CALCIUM CARBONATE\MAGNESIUM HYDROXIDE
     Route: 065
     Dates: start: 1998, end: 1999
  23. TUMS [Concomitant]
     Active Substance: CALCIUM CARBONATE
     Route: 065
     Dates: start: 1997, end: 2000
  24. AMLODIPINE [Concomitant]
     Active Substance: AMLODIPINE BESYLATE
  25. BUPROPION [Concomitant]
     Active Substance: BUPROPION
  26. METOPROLOL [Concomitant]
     Active Substance: METOPROLOL
  27. NOVOLOG [Concomitant]
     Active Substance: INSULIN ASPART
  28. BENICAR [Concomitant]
     Active Substance: OLMESARTAN MEDOXOMIL
  29. FUROSEMIDE [Concomitant]
     Active Substance: FUROSEMIDE
     Indication: Hypertension
     Route: 065
     Dates: start: 2015, end: 2018
  30. LISINOPRIL [Concomitant]
     Active Substance: LISINOPRIL
     Indication: Hypertension
     Route: 065
     Dates: start: 2010
  31. HYDRALAZINE [Concomitant]
     Active Substance: HYDRALAZINE HYDROCHLORIDE
     Indication: Hypertension
     Route: 065
     Dates: start: 2016

REACTIONS (8)
  - End stage renal disease [Fatal]
  - Acute myocardial infarction [Fatal]
  - Arteriosclerosis coronary artery [Fatal]
  - Type 2 diabetes mellitus [Fatal]
  - Chronic kidney disease [Not Recovered/Not Resolved]
  - Acute kidney injury [Not Recovered/Not Resolved]
  - Renal failure [Unknown]
  - Renal injury [Unknown]

NARRATIVE: CASE EVENT DATE: 20131108
